FAERS Safety Report 6369800-5 (Version None)
Quarter: 2009Q3

REPORT INFORMATION
  Report Type: 
  Country: None (occurrence: None)
  Receive Date: 20090917
  Receipt Date: 20090901
  Transmission Date: 20100115
  Serious: Yes (Other)
  Sender: FDA-Public Use
  Company Number: JP1-P-008417

PATIENT
  Age: 51 Year
  Sex: Female
  Weight: 88.4514 kg

DRUGS (5)
  1. XYREM [Suspect]
     Indication: SLEEP DISORDER
     Dosage: 4.5 GM (2.5 GM, 2 IN 1 D), ORAL; 7.5 GM (3.75 GM, 2 IN 1 D), ORAL
     Route: 048
     Dates: start: 20090701, end: 20090823
  2. XYREM [Suspect]
     Indication: SLEEP DISORDER
     Dosage: 4.5 GM (2.5 GM, 2 IN 1 D), ORAL; 7.5 GM (3.75 GM, 2 IN 1 D), ORAL
     Route: 048
     Dates: start: 20090824
  3. NORTIPTYLINE [Concomitant]
  4. PRAVASTATIN [Concomitant]
  5. BLOOD PRESSURE MEDICATION [Concomitant]

REACTIONS (7)
  - ABNORMAL BEHAVIOUR [None]
  - AMNESIA [None]
  - DISORIENTATION [None]
  - FIBULA FRACTURE [None]
  - OEDEMA PERIPHERAL [None]
  - SLEEP TALKING [None]
  - VOMITING [None]
